FAERS Safety Report 10068687 (Version 1)
Quarter: 2014Q2

REPORT INFORMATION
  Report Type: Spontaneous
  Country: GB (occurrence: GB)
  Receive Date: 20140409
  Receipt Date: 20140409
  Transmission Date: 20141212
  Serious: Yes (Hospitalization, Other)
  Sender: FDA-Public Use
  Company Number: GB-OTSUKA-US-2014-10677

PATIENT
  Age: 79 Year
  Sex: Female

DRUGS (1)
  1. BUSULFEX [Suspect]
     Indication: MYELOPROLIFERATIVE DISORDER
     Dosage: UNK
     Route: 065
     Dates: end: 20131122

REACTIONS (2)
  - Pulmonary toxicity [Not Recovered/Not Resolved]
  - Dyspnoea [Not Recovered/Not Resolved]
